FAERS Safety Report 5653156-7 (Version None)
Quarter: 2008Q1

REPORT INFORMATION
  Report Type: 
  Country: None (occurrence: None)
  Receive Date: 20080306
  Receipt Date: 20080220
  Transmission Date: 20080703
  Serious: Yes (Hospitalization)
  Sender: FDA-Public Use
  Company Number: NL-GENENTECH-256822

PATIENT
  Sex: Female

DRUGS (8)
  1. BEVACIZUMAB [Suspect]
     Indication: COLORECTAL CANCER
     Dosage: 638 MG, Q3W
     Route: 042
     Dates: start: 20051109
  2. CAPECITABINE [Suspect]
     Indication: COLORECTAL CANCER
     Dosage: 2000 MG, BID
     Route: 048
     Dates: start: 20051109
  3. CAPECITABINE [Suspect]
     Dosage: 1750 MG, UNK
  4. OXALIPLATIN [Suspect]
     Indication: COLORECTAL CANCER
     Dosage: 248 MG, Q3W
     Route: 042
     Dates: start: 20051109
  5. METOPROLOL TARTRATE [Concomitant]
     Indication: DRUG USE FOR UNKNOWN INDICATION
  6. CHLORHEXIDINE GLUCONATE [Concomitant]
     Indication: DRUG USE FOR UNKNOWN INDICATION
  7. SINTROM [Concomitant]
     Indication: DRUG USE FOR UNKNOWN INDICATION
  8. ZESTRIL [Concomitant]
     Indication: DRUG USE FOR UNKNOWN INDICATION

REACTIONS (2)
  - PROTEINURIA [None]
  - VASCULITIS [None]
